FAERS Safety Report 5238918-2 (Version None)
Quarter: 2007Q1

REPORT INFORMATION
  Report Type: 
  Country: None (occurrence: None)
  Receive Date: 20070215
  Receipt Date: 20070206
  Transmission Date: 20070707
  Serious: Yes (Death, Hospitalization, Other)
  Sender: FDA-Public Use
  Company Number: SG-MERCK-0608SGP00002

PATIENT
  Age: 71 Year
  Sex: Male

DRUGS (12)
  1. VYTORIN [Suspect]
     Indication: BLOOD CHOLESTEROL INCREASED
     Route: 048
     Dates: start: 20060412, end: 20060420
  2. VYTORIN [Suspect]
     Route: 048
     Dates: start: 20060420, end: 20060423
  3. AMIODARONE HYDROCHLORIDE [Concomitant]
     Route: 048
     Dates: start: 20060410, end: 20060429
  4. AMIODARONE HYDROCHLORIDE [Concomitant]
     Route: 065
     Dates: start: 20060227, end: 20060410
  5. WARFARIN [Concomitant]
     Route: 048
     Dates: start: 20060317
  6. WARFARIN [Concomitant]
     Route: 048
     Dates: end: 20060425
  7. NONSTEROIDAL ANTI-INFLAMMATORY DRUG (UNSPECIFIED) [Concomitant]
     Indication: GOUT
     Route: 048
  8. FUROSEMIDE [Concomitant]
     Indication: POLYURIA
     Route: 065
  9. DIGOXIN [Concomitant]
     Route: 065
     Dates: start: 20060227
  10. POTASSIUM CHLORIDE [Concomitant]
     Route: 065
  11. METOLAZONE [Concomitant]
     Route: 065
  12. TRIMETAZIDINE [Concomitant]
     Route: 065

REACTIONS (16)
  - ALANINE AMINOTRANSFERASE INCREASED [None]
  - ASPARTATE AMINOTRANSFERASE INCREASED [None]
  - BLOOD CREATINE PHOSPHOKINASE INCREASED [None]
  - CARDIAC FAILURE CONGESTIVE [None]
  - CONGESTIVE CARDIOMYOPATHY [None]
  - DECUBITUS ULCER [None]
  - DYSPHONIA [None]
  - GOUT [None]
  - MULTI-ORGAN FAILURE [None]
  - MYOPATHY [None]
  - MYOSITIS [None]
  - NAUSEA [None]
  - PYREXIA [None]
  - RENAL FAILURE ACUTE [None]
  - RHABDOMYOLYSIS [None]
  - VOMITING [None]
